FAERS Safety Report 12551262 (Version 2)
Quarter: 2016Q3

REPORT INFORMATION
  Report Type: Spontaneous
  Country: US (occurrence: US)
  Receive Date: 20160713
  Receipt Date: 20160719
  Transmission Date: 20161109
  Serious: No
  Sender: FDA-Public Use
  Company Number: US-TEVA-655206USA

PATIENT
  Age: 32 Year
  Sex: Female

DRUGS (4)
  1. ZECUITY [Suspect]
     Active Substance: SUMATRIPTAN SUCCINATE
     Route: 062
     Dates: start: 20160503
  2. ZECUITY [Suspect]
     Active Substance: SUMATRIPTAN SUCCINATE
     Route: 062
     Dates: start: 20160423
  3. ZECUITY [Suspect]
     Active Substance: SUMATRIPTAN SUCCINATE
     Route: 062
     Dates: start: 20160505
  4. ZECUITY [Suspect]
     Active Substance: SUMATRIPTAN SUCCINATE
     Route: 062
     Dates: start: 20160502

REACTIONS (11)
  - Nausea [Unknown]
  - Application site warmth [Not Recovered/Not Resolved]
  - Skin reaction [Unknown]
  - Musculoskeletal stiffness [Unknown]
  - Skin exfoliation [Not Recovered/Not Resolved]
  - Head discomfort [Unknown]
  - Application site pain [Not Recovered/Not Resolved]
  - Application site irritation [Unknown]
  - Application site pruritus [Not Recovered/Not Resolved]
  - Device leakage [Unknown]
  - Application site erythema [Not Recovered/Not Resolved]

NARRATIVE: CASE EVENT DATE: 20160423
